FAERS Safety Report 6467116-X (Version None)
Quarter: 2009Q4

REPORT INFORMATION
  Report Type: 
  Country: None (occurrence: None)
  Receive Date: 20091202
  Receipt Date: 20091126
  Transmission Date: 20100525
  Serious: Yes (Other)
  Sender: FDA-Public Use
  Company Number: JP-PFIZER INC-2009284882

PATIENT
  Sex: Female
  Weight: 55 kg

DRUGS (10)
  1. EPLERENONE [Suspect]
     Indication: HYPERTENSION
     Dosage: 50 MG, 1X/DAY
     Route: 048
     Dates: start: 20080801
  2. MEXITIL [Concomitant]
     Dosage: UNK
     Route: 048
     Dates: start: 20080715
  3. FRANDOL [Concomitant]
     Dosage: UNK
     Route: 062
     Dates: start: 20080916
  4. DOGMATYL [Concomitant]
     Dosage: UNK
     Route: 048
  5. LEVOTOMIN [Concomitant]
     Dosage: UNK
     Route: 048
  6. LUDIOMIL [Concomitant]
     Dosage: UNK
     Route: 048
  7. WYPAX [Concomitant]
     Dosage: UNK
     Route: 048
  8. MYSLEE [Concomitant]
     Dosage: UNK
     Route: 048
  9. LENDORMIN [Concomitant]
     Dosage: UNK
     Route: 048
  10. SIGMART [Concomitant]
     Dosage: UNK
     Route: 048
     Dates: start: 20081014

REACTIONS (2)
  - ANGINA PECTORIS [None]
  - PNEUMONIA [None]
